FAERS Safety Report 16574746 (Version 1)
Quarter: 2019Q3

REPORT INFORMATION
  Report Type: Spontaneous
  Country: US (occurrence: US)
  Receive Date: 20190715
  Receipt Date: 20190715
  Transmission Date: 20191004
  Serious: No
  Sender: FDA-Public Use
  Company Number: US-SOMERSET-2019-US-000016

PATIENT
  Sex: Female

DRUGS (1)
  1. TOBRAMYCIN OPHTHALMIC SOLUTION USP, 0.3% [Suspect]
     Active Substance: TOBRAMYCIN
     Route: 047
     Dates: start: 20190512, end: 20190513

REACTIONS (1)
  - Hypersensitivity [Recovered/Resolved]

NARRATIVE: CASE EVENT DATE: 20190512
